FAERS Safety Report 13085208 (Version 1)
Quarter: 2017Q1

REPORT INFORMATION
  Report Type: Spontaneous
  Country: US (occurrence: US)
  Receive Date: 20170104
  Receipt Date: 20170104
  Transmission Date: 20170428
  Serious: Yes (Hospitalization)
  Sender: FDA-Public Use
  Company Number: US-ELI_LILLY_AND_COMPANY-US201612010151

PATIENT
  Age: 60 Year
  Sex: Male

DRUGS (2)
  1. LANTUS [Concomitant]
     Active Substance: INSULIN GLARGINE
     Dosage: UNK, UNKNOWN
     Route: 065
  2. HUMALOG [Suspect]
     Active Substance: INSULIN LISPRO
     Indication: TYPE 2 DIABETES MELLITUS
     Dosage: UNK
     Dates: start: 201205

REACTIONS (10)
  - Bladder disorder [Unknown]
  - Incorrect drug administration duration [Unknown]
  - Blood creatinine increased [Unknown]
  - Stress [Unknown]
  - Blood glucose decreased [Unknown]
  - Fall [Unknown]
  - Upper limb fracture [Unknown]
  - Hyperhidrosis [Unknown]
  - Blood glucose increased [Unknown]
  - Bladder dilatation [Unknown]

NARRATIVE: CASE EVENT DATE: 201205
